FAERS Safety Report 8184995 (Version 2)
Quarter: 2013Q2

REPORT INFORMATION
  Report Type: Spontaneous
  Country: BR (occurrence: BR)
  Receive Date: 20111018
  Receipt Date: 20130524
  Transmission Date: 20140414
  Serious: Yes (Other)
  Sender: FDA-Public Use
  Company Number: BR-AMGEN-BRASP2011052697

PATIENT
  Age: 55 Year
  Sex: Female
  Weight: 94 kg

DRUGS (13)
  1. ENBREL [Suspect]
     Indication: RHEUMATOID ARTHRITIS
     Dosage: 25 MG, 2X/WEEK
     Route: 058
     Dates: start: 20110725, end: 201302
  2. FLANCOX [Concomitant]
     Indication: RHEUMATIC DISORDER
     Dosage: UNSPECIFIED DOSAGE, ONCE DAILY
     Dates: start: 201102
  3. FLANCOX [Concomitant]
     Indication: PAIN
     Dosage: UNK
  4. SIMVASTATIN [Concomitant]
     Indication: BLOOD CHOLESTEROL ABNORMAL
     Dosage: UNKNOWN DOSE, 1X/DAY
     Dates: start: 2010
  5. LOSARTAN [Concomitant]
     Indication: BLOOD PRESSURE
     Dosage: ONCE DAILY
     Dates: start: 201105
  6. ADVIL                              /00109201/ [Concomitant]
     Indication: PAIN
     Dosage: UNK
  7. LEFLUNOMIDE [Concomitant]
     Dosage: ONCE DAILY
     Dates: start: 2006
  8. VASLIP                             /01341302/ [Concomitant]
     Dosage: ONCE DAILY
     Dates: start: 201103
  9. DEFLAIMMUN [Concomitant]
     Dosage: TWICE DAILY
     Dates: start: 2010
  10. DEFLAZACORT [Concomitant]
     Indication: ARTHRITIS
     Dosage: 6 MG, 1X/DAY
  11. MELOXICAM [Concomitant]
     Indication: ARTHRITIS
     Dosage: 15 MG, 1X/DAY
  12. DORFLEX [Concomitant]
     Indication: PAIN
     Dosage: 50 MG, AS NEEDED
  13. DORFLEX [Concomitant]
     Indication: ARTHRITIS
     Dosage: UNK

REACTIONS (7)
  - Drug effect incomplete [Unknown]
  - Erythema [Unknown]
  - Swelling [Unknown]
  - Glucose tolerance impaired [Unknown]
  - Injection site pain [Unknown]
  - Injection site erythema [Unknown]
  - Injection site pruritus [Unknown]
